FAERS Safety Report 8604782-4 (Version None)
Quarter: 2012Q3

REPORT INFORMATION
  Report Type: 
  Country: None (occurrence: None)
  Receive Date: 20120820
  Receipt Date: 20120809
  Transmission Date: 20120928
  Serious: Yes (Hospitalization)
  Sender: FDA-Public Use
  Company Number: US-JNJFOC-20120606143

PATIENT
  Sex: Female
  Weight: 99.79 kg

DRUGS (9)
  1. VIMPAT [Concomitant]
     Indication: PRODUCT USED FOR UNKNOWN INDICATION
     Dosage: 64.8MG/ONCE INTHE MORNING AND TWICE AT BEDTIME
     Route: 065
  2. TOPAMAX [Suspect]
     Indication: EPILEPSY
     Dosage: 25MG/TWO TABLETS TWICE A DAY
     Route: 048
     Dates: start: 20100101
  3. HYDROCHLOROTHIAZIDE [Concomitant]
     Indication: PRODUCT USED FOR UNKNOWN INDICATION
     Dosage: 64.8MG/ONCE INTHE MORNING AND TWICE AT BEDTIME
     Route: 065
  4. TOPAMAX [Suspect]
     Route: 048
     Dates: end: 20120630
  5. TOPAMAX [Suspect]
     Route: 048
     Dates: end: 20120630
  6. TOPAMAX [Suspect]
     Dosage: 50MG/3 TABLETS IN THE MORNING AND 4 TABLETS AT BEDTIME
     Route: 048
  7. TOPAMAX [Suspect]
     Dosage: 50MG/3 TABLETS IN THE MORNING AND 4 TABLETS AT BEDTIME
     Route: 048
  8. PHENOBARBITAL TAB [Concomitant]
     Indication: CONVULSION
     Dosage: 64.8MG/ONCE INTHE MORNING AND TWICE AT BEDTIME
     Route: 048
     Dates: start: 20020101
  9. TOPAMAX [Suspect]
     Indication: CONVULSION
     Dosage: 25MG/TWO TABLETS TWICE A DAY
     Route: 048
     Dates: start: 20100101

REACTIONS (4)
  - WEIGHT DECREASED [None]
  - CONVULSION [None]
  - ROSACEA [None]
  - ALOPECIA [None]
